FAERS Safety Report 19427605 (Version 1)
Quarter: 2021Q2

REPORT INFORMATION
  Report Type: Spontaneous
  Country: US (occurrence: US)
  Receive Date: 20210616
  Receipt Date: 20210616
  Transmission Date: 20210717
  Serious: No
  Sender: FDA-Public Use
  Company Number: US-ROCHE-2667577

PATIENT
  Age: 74 Year
  Sex: Female
  Weight: 88.53 kg

DRUGS (3)
  1. REMICADE [Concomitant]
     Active Substance: INFLIXIMAB
  2. TYLENOL ARTHRITIS PAIN [Concomitant]
     Active Substance: ACETAMINOPHEN
  3. ACTEMRA [Suspect]
     Active Substance: TOCILIZUMAB
     Indication: RHEUMATOID ARTHRITIS
     Dosage: ONGOING : YES
     Route: 042
     Dates: start: 20200617

REACTIONS (3)
  - Drug ineffective [Unknown]
  - Pain in extremity [Not Recovered/Not Resolved]
  - Therapeutic product effect decreased [Unknown]

NARRATIVE: CASE EVENT DATE: 20200617
